FAERS Safety Report 7112870-7 (Version None)
Quarter: 2010Q4

REPORT INFORMATION
  Report Type: 
  Country: None (occurrence: None)
  Receive Date: 20101119
  Receipt Date: 20100129
  Transmission Date: 20110411
  Serious: No
  Sender: FDA-Public Use
  Company Number: US-BRISTOL-MYERS SQUIBB COMPANY-14963508

PATIENT
  Sex: Female

DRUGS (1)
  1. AVALIDE [Suspect]
     Indication: HYPERTENSION
     Dosage: 1 DF= 150 MG/12.5

REACTIONS (4)
  - DIARRHOEA [None]
  - MALAISE [None]
  - NAUSEA [None]
  - WEIGHT DECREASED [None]
